FAERS Safety Report 4687821-5 (Version None)
Quarter: 2005Q2

REPORT INFORMATION
  Report Type: 
  Country: None (occurrence: None)
  Receive Date: 20050610
  Receipt Date: 20050531
  Transmission Date: 20051028
  Serious: Yes (Other)
  Sender: FDA-Public Use
  Company Number: FR-JNJFOC-20050601242

PATIENT
  Age: 62 Year
  Sex: Female

DRUGS (2)
  1. CONTRAMAL [Suspect]
     Route: 042
  2. ONDANSETRON [Concomitant]
     Route: 042

REACTIONS (2)
  - BRADYCARDIA [None]
  - HYPOTHERMIA [None]
